FAERS Safety Report 7471341-9 (Version None)
Quarter: 2011Q2

REPORT INFORMATION
  Report Type: 
  Country: None (occurrence: None)
  Receive Date: 20110510
  Receipt Date: 20110509
  Transmission Date: 20111010
  Serious: Yes (Hospitalization)
  Sender: FDA-Public Use
  Company Number: JP-MERCK-1104USA02238

PATIENT
  Age: 71 Year
  Sex: Male

DRUGS (5)
  1. ALOSITOL [Concomitant]
     Route: 048
     Dates: end: 20101109
  2. UNIPHYL [Concomitant]
     Route: 048
     Dates: end: 20101208
  3. ZOLPIDEM [Concomitant]
     Route: 048
  4. METHYCOBAL [Concomitant]
     Route: 048
  5. SINGULAIR [Suspect]
     Indication: ASTHMA
     Route: 048
     Dates: start: 20090101, end: 20101109

REACTIONS (1)
  - ALLERGIC GRANULOMATOUS ANGIITIS [None]
